FAERS Safety Report 6753005-X (Version None)
Quarter: 2010Q2

REPORT INFORMATION
  Report Type: 
  Country: None (occurrence: None)
  Receive Date: 20100603
  Receipt Date: 20100526
  Transmission Date: 20101027
  Serious: Yes (Other)
  Sender: FDA-Public Use
  Company Number: FR-JNJFOC-20100510918

PATIENT
  Sex: Female

DRUGS (10)
  1. TOPIRAMATE [Suspect]
     Indication: EPILEPSY
     Route: 048
  2. LEPONEX [Suspect]
     Indication: DRUG USE FOR UNKNOWN INDICATION
     Route: 048
  3. ANAFRANIL [Suspect]
     Indication: DEPRESSION
     Route: 048
  4. MOPRAL [Suspect]
     Indication: DRUG USE FOR UNKNOWN INDICATION
     Route: 048
  5. MAGNE- B6 [Concomitant]
     Indication: MAGNESIUM DEFICIENCY
     Route: 048
  6. PRAVASTATIN SODIUM [Concomitant]
     Indication: HYPERCHOLESTEROLAEMIA
     Route: 048
  7. DIFFU K [Concomitant]
     Indication: HYPOKALAEMIA
     Route: 048
  8. ARTANE [Concomitant]
     Indication: PARKINSON'S DISEASE
     Route: 048
  9. ZOLPIDEM [Concomitant]
     Indication: INSOMNIA
     Route: 048
  10. ZINC [Concomitant]
     Indication: ZINC DEFICIENCY
     Route: 048

REACTIONS (1)
  - NEUTROPENIA [None]
